FAERS Safety Report 9505215 (Version 1)
Quarter: 2013Q1

REPORT INFORMATION
  Report Type: Spontaneous
  Country: US (occurrence: None)
  Receive Date: 20130220
  Receipt Date: 20130220
  Transmission Date: 20140127
  Serious: No
  Sender: FDA-Public Use
  Company Number: 1000040798

PATIENT
  Age: 62 Year
  Sex: Female

DRUGS (12)
  1. VIIBRYD [Suspect]
     Indication: ANXIETY
     Dosage: 10 MG (10 MG, 1 IN 1 D), ORAL
     Route: 048
     Dates: start: 20121116, end: 201211
  2. VIIBRYD [Suspect]
     Dosage: 40 MG (40 MG, 1 IN 1 D), ORAL
     Route: 048
     Dates: start: 20121129, end: 20121129
  3. SAVELLA (MILNACIPRAN HYDROCHLORIDE) (MILNACIPRAN HYDROCHLORIDE) [Concomitant]
  4. ATENOLOL (ATENOLOL) (ATENOLOL) [Concomitant]
  5. PROCARDIA (NIFEDIPINE) (NIFEDIPINE) [Concomitant]
  6. PRILOSEC (OMEPRAZOLE) (OMEPRAZOLE) [Concomitant]
  7. LIPITOR (ATORVASTATIN CALCIUM) (ATORVASTATIN CALCIUM) [Concomitant]
  8. IBUPROFEN (IBUPROFEN) (IBUPROFEN) [Concomitant]
  9. EXCEDRIN HEADACHE NOS (EXCEDRIN HEADACHE NOS) (EXCEDRIN HEADACHE NOS) [Concomitant]
  10. FLONASE (FLUTICASONE PROPIONATE) (FLUTICASONE PROPIONATE) [Concomitant]
  11. XANAX (ALPRAZOLAM) (ALPRAZOLAM) [Concomitant]
  12. MUCINEX DM (TUSSIN DM) (TUSSIN DM) [Concomitant]

REACTIONS (7)
  - Feeling abnormal [None]
  - Drug ineffective [None]
  - Somnolence [None]
  - Insomnia [None]
  - Dizziness [None]
  - Agitation [None]
  - Off label use [None]
